FAERS Safety Report 8589334-7 (Version None)
Quarter: 2012Q3

REPORT INFORMATION
  Report Type: 
  Country: None (occurrence: None)
  Receive Date: 20120813
  Receipt Date: 20120731
  Transmission Date: 20120928
  Serious: Yes (Life-Threatening, Hospitalization)
  Sender: FDA-Public Use
  Company Number: BR-ELI_LILLY_AND_COMPANY-BR201111009018

PATIENT
  Sex: Male
  Weight: 67 kg

DRUGS (9)
  1. DEXTROSE [Concomitant]
     Indication: DECREASED APPETITE
     Dosage: UNK
     Dates: start: 20111129
  2. ENOXAPARIN SODIUM [Concomitant]
     Dosage: UNK
     Dates: start: 20111129
  3. DEXAMETHASONE [Concomitant]
     Dosage: UNK
     Dates: start: 20111208, end: 20111215
  4. NECITUMUMAB (11F8) (LY3012211) [Suspect]
     Indication: NON-SMALL CELL LUNG CANCER
     Dosage: 800 MG, EVERY 21 DAYS PER CYCLE
     Route: 042
     Dates: start: 20111101, end: 20111122
  5. ENOXAPARIN SODIUM [Concomitant]
  6. HEPARIN [Concomitant]
     Dosage: UNK
     Dates: start: 20111201, end: 20111201
  7. WARFARIN SODIUM [Concomitant]
     Indication: ARTERIAL OCCLUSIVE DISEASE
     Dosage: UNK
     Dates: start: 20111213, end: 20111213
  8. CISPLATIN [Suspect]
     Indication: NON-SMALL CELL LUNG CANCER
     Dosage: 134 MG, EVERY 21 DAYS PER CYCLE
     Route: 042
     Dates: start: 20111101, end: 20111122
  9. GEMCITABINE HYDROCHLORIDE [Suspect]
     Indication: NON-SMALL CELL LUNG CANCER
     Dosage: 2240 MG, EVERY 21 DAYS PER CYCLE
     Route: 042
     Dates: start: 20111101, end: 20111122

REACTIONS (3)
  - DEHYDRATION [None]
  - SUPRAVENTRICULAR TACHYCARDIA [None]
  - ARTERIAL OCCLUSIVE DISEASE [None]
